FAERS Safety Report 8923009 (Version 1)
Quarter: 2012Q4

REPORT INFORMATION
  Report Type: Spontaneous
  Country: US (occurrence: None)
  Receive Date: 20121115
  Receipt Date: 20121115
  Transmission Date: 20130627
  Serious: Yes (Other)
  Sender: FDA-Public Use
  Company Number: None

PATIENT
  Age: 65 Year
  Sex: Female
  Weight: 65.77 kg

DRUGS (4)
  1. BESIVANCE [Suspect]
     Indication: PREOPERATIVE CARE
     Route: 047
     Dates: start: 20121013, end: 20121022
  2. BESIVANCE [Suspect]
     Indication: POSTOPERATIVE CARE
     Route: 047
     Dates: start: 20121013, end: 20121022
  3. BESIVANCE [Suspect]
     Indication: PREOPERATIVE CARE
     Dates: start: 20121103, end: 20121107
  4. BESIVANCE [Suspect]
     Indication: POSTOPERATIVE CARE
     Dates: start: 20121103, end: 20121107

REACTIONS (8)
  - Glossodynia [None]
  - Insomnia [None]
  - Cold sweat [None]
  - Headache [None]
  - Frequent bowel movements [None]
  - Mucous stools [None]
  - Sensitivity of teeth [None]
  - Gingival pain [None]
